FAERS Safety Report 10725156 (Version 1)
Quarter: 2015Q1

REPORT INFORMATION
  Report Type: Spontaneous
  Country: RU (occurrence: RU)
  Receive Date: 20150120
  Receipt Date: 20150120
  Transmission Date: 20150721
  Serious: Yes (Other)
  Sender: FDA-Public Use
  Company Number: RU-ABBVIE-15P-251-1334976-00

PATIENT
  Sex: Female

DRUGS (5)
  1. KIVEXA [Suspect]
     Active Substance: ABACAVIR SULFATE\LAMIVUDINE
     Indication: HIV INFECTION
     Dosage: IN MORNING AFTER KALETRA + IN EVENING
     Route: 065
  2. KALETRA [Suspect]
     Active Substance: LOPINAVIR\RITONAVIR
     Indication: HIV INFECTION
     Dosage: DURING THE PREGNANCY
     Route: 065
  3. COMBIVIR [Suspect]
     Active Substance: LAMIVUDINE\ZIDOVUDINE
     Indication: HIV INFECTION
     Dosage: DURING THE PREGNANCY
     Route: 065
  4. COMBIVIR [Suspect]
     Active Substance: LAMIVUDINE\ZIDOVUDINE
     Route: 065
  5. KALETRA [Suspect]
     Active Substance: LOPINAVIR\RITONAVIR
     Dosage: TWO IN THE MORNING, TWO IN THE EVENING
     Route: 065

REACTIONS (20)
  - Emotional disorder [Unknown]
  - Vomiting [Unknown]
  - Dysgeusia [Unknown]
  - Decreased appetite [Unknown]
  - Pain [Unknown]
  - Unevaluable event [Unknown]
  - Fear [Unknown]
  - Fatigue [Unknown]
  - Malaise [Unknown]
  - Liver disorder [Unknown]
  - Haematemesis [Unknown]
  - Asthenia [Unknown]
  - Ocular icterus [Unknown]
  - Abdominal discomfort [Unknown]
  - Gastrointestinal disorder [Unknown]
  - Toxicity to various agents [Unknown]
  - Feeling drunk [Unknown]
  - Abdominal distension [Unknown]
  - Splenomegaly [Unknown]
  - Anaemia [Unknown]

NARRATIVE: CASE EVENT DATE: 2014
